FAERS Safety Report 6925530-X (Version None)
Quarter: 2010Q3

REPORT INFORMATION
  Report Type: 
  Country: None (occurrence: None)
  Receive Date: 20100816
  Receipt Date: 20100804
  Transmission Date: 20110219
  Serious: Yes (Hospitalization)
  Sender: FDA-Public Use
  Company Number: US-ROCHE-719681

PATIENT
  Sex: Female
  Weight: 110.8 kg

DRUGS (7)
  1. PEGINTERFERON ALFA-2A [Suspect]
     Route: 058
     Dates: start: 20100504
  2. RIBAVIRIN [Suspect]
     Route: 048
     Dates: start: 20100504
  3. IBUPROFEN [Concomitant]
     Dates: start: 20100520
  4. ACETAMINOPHEN [Concomitant]
     Dates: start: 20100520
  5. MUCINEX [Concomitant]
     Dates: start: 20100520
  6. PROCRIT [Concomitant]
     Dosage: DOSE: 40000 UNITS
     Dates: start: 20100610
  7. ZOLPIDEM [Concomitant]
     Dates: start: 20100713

REACTIONS (1)
  - CRYPTOSPORIDIOSIS INFECTION [None]
